FAERS Safety Report 9099238 (Version 2)
Quarter: 2013Q1

REPORT INFORMATION
  Report Type: Spontaneous
  Country: MX (occurrence: MX)
  Receive Date: 20130214
  Receipt Date: 20130228
  Transmission Date: 20140127
  Serious: Yes (Death)
  Sender: FDA-Public Use
  Company Number: PHHY2013MX014267

PATIENT
  Age: 72 Year
  Sex: Female

DRUGS (6)
  1. EXFORGE [Suspect]
     Indication: HYPERTENSION
     Dosage: 2 DF (160 MG VALS/ 5MG AMLO), DAILY
     Route: 048
     Dates: start: 201301
  2. NEOMYCIN [Concomitant]
     Indication: ANTIBIOTIC THERAPY
     Dosage: UNK UKN, UNK
  3. LASILACTON [Concomitant]
     Indication: DIURETIC THERAPY
     Dosage: UNK UKN, UNK
  4. FUROSEMIDE [Concomitant]
     Indication: DIURETIC THERAPY
     Dosage: UNK UKN, UNK
  5. INSULIN [Concomitant]
     Indication: DIABETES MELLITUS
     Dosage: UNK UKN, UNK
  6. LACTULOSE [Concomitant]
     Indication: DETOXIFICATION
     Dosage: UNK UKN, UNK

REACTIONS (9)
  - Hepatic cirrhosis [Fatal]
  - Renal failure [Fatal]
  - Electrolyte imbalance [Fatal]
  - Underweight [Fatal]
  - Asthenia [Fatal]
  - Anaemia [Fatal]
  - Type 2 diabetes mellitus [Fatal]
  - Hepatitis C [Fatal]
  - Renal failure chronic [Fatal]
